FAERS Safety Report 10699879 (Version 1)
Quarter: 2014Q4

REPORT INFORMATION
  Report Type: Spontaneous
  Country: GB (occurrence: None)
  Receive Date: 20141205
  Receipt Date: 20141205
  Transmission Date: 20150529
  Serious: Yes (Hospitalization, Other)
  Sender: FDA-Public Use
  Company Number: GAM-411-14-GB

PATIENT
  Age: 51 Year
  Sex: Male

DRUGS (20)
  1. CITALOPRAM [Concomitant]
     Active Substance: CITALOPRAM HYDROBROMIDE
  2. MYCOPHENOLATE MOFETIL. [Concomitant]
     Active Substance: MYCOPHENOLATE MOFETIL
  3. PARACETAMOL [Concomitant]
     Active Substance: ACETAMINOPHEN
  4. DOXAZOSIN [Concomitant]
     Active Substance: DOXAZOSIN\DOXAZOSIN MESYLATE
  5. HEPARIN SODIUM. [Concomitant]
     Active Substance: HEPARIN SODIUM
  6. OCTAGAM IMMUNE GLOBULIN (HUMAN) [Suspect]
     Active Substance: HUMAN IMMUNOGLOBULIN G
     Indication: KIDNEY TRANSPLANT REJECTION
     Dosage: NOT OTHERWISE SPECIFIED
     Route: 042
     Dates: start: 20141016, end: 20141018
  7. AMLODIPINE [Concomitant]
     Active Substance: AMLODIPINE BESYLATE
  8. METHYLPREDNISOLONE. [Concomitant]
     Active Substance: METHYLPREDNISOLONE
  9. VALGANCICLOVIR [Concomitant]
     Active Substance: VALGANCICLOVIR
  10. NEFOPAM [Concomitant]
     Active Substance: NEFOPAM
  11. PREDNISOLONE. [Concomitant]
     Active Substance: PREDNISOLONE
  12. ACICLOVIR [Concomitant]
     Active Substance: ACYCLOVIR
  13. ATORVASTATIN [Concomitant]
     Active Substance: ATORVASTATIN
  14. BUMETANIDE. [Concomitant]
     Active Substance: BUMETANIDE
  15. LANSOPRAZOLE. [Concomitant]
     Active Substance: LANSOPRAZOLE
  16. TACROLIMUS. [Concomitant]
     Active Substance: TACROLIMUS
  17. ALFACALCIDOL [Concomitant]
     Active Substance: ALFACALCIDOL
  18. ATENOLOL. [Concomitant]
     Active Substance: ATENOLOL
  19. BORTEZOMIB [Concomitant]
     Active Substance: BORTEZOMIB
  20. SULFAMETHOXAZOLE AND TRIMETHOPRIM [Concomitant]
     Active Substance: SULFAMETHOXAZOLE\TRIMETHOPRIM

REACTIONS (3)
  - Pulmonary embolism [None]
  - Tachycardia [None]
  - Dyspnoea [None]

NARRATIVE: CASE EVENT DATE: 20141018
